FAERS Safety Report 9669555 (Version 1)
Quarter: 2013Q4

REPORT INFORMATION
  Report Type: Spontaneous
  Country: ES (occurrence: ES)
  Receive Date: 20131105
  Receipt Date: 20131105
  Transmission Date: 20140711
  Serious: Yes (Other)
  Sender: FDA-Public Use
  Company Number: ES-JNJFOC-20131018222

PATIENT
  Sex: 0

DRUGS (1)
  1. INFLIXIMAB, RECOMBINANT [Suspect]
     Indication: PSORIASIS
     Dosage: (FREQUENCY: 0, 2 , 6 AND EVERY 8 WEEKS).
     Route: 042
     Dates: start: 2006, end: 2012

REACTIONS (2)
  - Atrioventricular block second degree [Unknown]
  - Infusion related reaction [Unknown]
